FAERS Safety Report 20020664 (Version 1)
Quarter: 2021Q4

REPORT INFORMATION
  Report Type: Spontaneous
  Country: CN (occurrence: CN)
  Receive Date: 20211101
  Receipt Date: 20211101
  Transmission Date: 20220303
  Serious: Yes (Other)
  Sender: FDA-Public Use
  Company Number: CN-PFIZER INC-202101430119

PATIENT
  Age: 2 Year
  Sex: Male
  Weight: 14.8 kg

DRUGS (4)
  1. CYTARABINE [Suspect]
     Active Substance: CYTARABINE
     Indication: Chemotherapy
     Dosage: 30.0 MG, 2X/DAY
     Route: 041
     Dates: start: 20211003, end: 20211003
  2. DEXAMETHASONE SODIUM PHOSPHATE [Concomitant]
     Active Substance: DEXAMETHASONE SODIUM PHOSPHATE
     Indication: Chemotherapy
     Dosage: 5.0 MG, 1X/DAY
     Route: 041
     Dates: start: 20211003, end: 20211003
  3. SODIUM CHLORIDE [Concomitant]
     Active Substance: SODIUM CHLORIDE
     Indication: Vehicle solution use
     Dosage: 3.0 ML, 1X/DAY
     Route: 041
     Dates: start: 20211003, end: 20211003
  4. METHOTREXATE [Concomitant]
     Active Substance: METHOTREXATE
     Indication: Chemotherapy
     Dosage: 12.5 MG, 1X/DAY
     Route: 041
     Dates: start: 20211003, end: 20211003

REACTIONS (4)
  - Pyrexia [Recovering/Resolving]
  - Generalised oedema [Recovering/Resolving]
  - Oliguria [Recovering/Resolving]
  - Cytarabine syndrome [Unknown]

NARRATIVE: CASE EVENT DATE: 20211004
